FAERS Safety Report 5780106-5 (Version None)
Quarter: 2008Q2

REPORT INFORMATION
  Report Type: 
  Country: None (occurrence: None)
  Receive Date: 20080620
  Receipt Date: 20080613
  Transmission Date: 20081010
  Serious: Yes (Other)
  Sender: FDA-Public Use
  Company Number: GB-TEVA-172853ISR

PATIENT
  Age: 63 Year
  Sex: Male
  Weight: 105 kg

DRUGS (1)
  1. AMOXICILLIN + CLAVULANATE POTASSIUM [Suspect]
     Indication: LOWER RESPIRATORY TRACT INFECTION
     Route: 048
     Dates: start: 20080527, end: 20080602

REACTIONS (3)
  - BLISTER [None]
  - RASH [None]
  - SWELLING FACE [None]
